FAERS Safety Report 7792293-8 (Version None)
Quarter: 2011Q4

REPORT INFORMATION
  Report Type: 
  Country: None (occurrence: None)
  Receive Date: 20111003
  Receipt Date: 20110927
  Transmission Date: 20120403
  Serious: Yes (Hospitalization)
  Sender: FDA-Public Use
  Company Number: PHHO2011IT02614

PATIENT
  Sex: Female
  Weight: 57 kg

DRUGS (2)
  1. GILENYA [Suspect]
     Indication: MULTIPLE SCLEROSIS
     Dosage: 0.5 MG, DAILY
     Route: 048
     Dates: start: 20101206, end: 20110208
  2. MODURETIC 5-50 [Concomitant]
     Indication: HYPERTENSION

REACTIONS (9)
  - DYSPNOEA EXERTIONAL [None]
  - CARDIAC FAILURE [None]
  - HYPERTENSIVE CRISIS [None]
  - HYPERTENSION [None]
  - BRONCHOSPASM [None]
  - CHEST PAIN [None]
  - BUNDLE BRANCH BLOCK RIGHT [None]
  - TACHYCARDIA [None]
  - RASH [None]
